FAERS Safety Report 12627885 (Version 3)
Quarter: 2016Q3

REPORT INFORMATION
  Report Type: Report from Study
  Country: MX (occurrence: MX)
  Receive Date: 20160806
  Receipt Date: 20160826
  Transmission Date: 20161109
  Serious: Yes (Hospitalization)
  Sender: FDA-Public Use
  Company Number: MX-ABBVIE-16K-107-1688765-00

PATIENT
  Age: 73 Year
  Sex: Male
  Weight: 82 kg

DRUGS (4)
  1. HUMIRA [Suspect]
     Active Substance: ADALIMUMAB
     Indication: PSORIASIS
     Route: 058
     Dates: start: 20110401, end: 20160715
  2. HUMIRA [Suspect]
     Active Substance: ADALIMUMAB
     Route: 058
     Dates: start: 2016
  3. CORTISON [Concomitant]
     Active Substance: CORTISONE ACETATE
     Indication: CROHN^S DISEASE
     Route: 048
  4. PENTASET [Concomitant]
     Indication: CROHN^S DISEASE
     Route: 042

REACTIONS (3)
  - Colostomy closure [Recovering/Resolving]
  - Haemorrhage [Recovering/Resolving]
  - Infection [Recovering/Resolving]

NARRATIVE: CASE EVENT DATE: 20160615
